FAERS Safety Report 5780908-5 (Version None)
Quarter: 2008Q2

REPORT INFORMATION
  Report Type: 
  Country: None (occurrence: None)
  Receive Date: 20080620
  Receipt Date: 20080610
  Transmission Date: 20081010
  Serious: Yes (Other)
  Sender: FDA-Public Use
  Company Number: FR-PFIZER INC-2008042708

PATIENT
  Sex: Female

DRUGS (10)
  1. LYRICA [Suspect]
     Indication: NEURALGIA
     Dates: start: 20080328, end: 20080424
  2. ATACAND [Concomitant]
     Route: 048
  3. VASTAREL [Concomitant]
     Route: 048
  4. LORAZEPAM [Concomitant]
     Route: 048
  5. TRANSIPEG [Concomitant]
     Route: 048
  6. SPAGULAX [Concomitant]
     Route: 048
  7. TRAMADOL HCL [Concomitant]
     Route: 048
  8. BONIVA [Concomitant]
     Route: 048
  9. ACETAMINOPHEN [Concomitant]
     Route: 048
  10. VAGOSTABYL [Concomitant]
     Route: 048

REACTIONS (2)
  - FACE OEDEMA [None]
  - HYPERTENSION [None]
